FAERS Safety Report 17098555 (Version 1)
Quarter: 2019Q4

REPORT INFORMATION
  Report Type: Spontaneous
  Country: US (occurrence: US)
  Receive Date: 20191105
  Receipt Date: 20191105
  Transmission Date: 20200122
  Serious: Yes (Other)
  Sender: FDA-Public Use
  Company Number: None

PATIENT

DRUGS (2)
  1. LISINOPRIL. [Suspect]
     Active Substance: LISINOPRIL
     Dosage: ?          QUANTITY:20 MG MILLIGRAM(S);?
  2. ATORVASTATIN CALCIUM 20MG 20MG LEK PHARMACEUTICALS FOR SANDOZ INC [Suspect]
     Active Substance: ATORVASTATIN CALCIUM
     Indication: HYPERTENSION
     Dosage: ?          QUANTITY:20 MG MILLIGRAM(S);?
     Route: 048
     Dates: start: 20190901, end: 20191006

REACTIONS (4)
  - Wrong product administered [None]
  - Product dispensing error [None]
  - Hypertension [None]
  - Malaise [None]

NARRATIVE: CASE EVENT DATE: 20191006
